FAERS Safety Report 4471423-X (Version None)
Quarter: 2004Q4

REPORT INFORMATION
  Report Type: 
  Country: None (occurrence: None)
  Receive Date: 20041007
  Receipt Date: 20041004
  Transmission Date: 20050328
  Serious: Yes (Other)
  Sender: FDA-Public Use
  Company Number: 002850

PATIENT
  Age: 42 Year
  Sex: Female

DRUGS (4)
  1. MEDROXYPROGESTERONE ACETATE [Suspect]
     Dates: start: 20000501, end: 20001101
  2. PROVERA [Suspect]
     Dates: start: 20000501, end: 20001101
  3. PREMARIN [Suspect]
     Dates: start: 20000501, end: 20001101
  4. MEDROXYPROGESTERONE ACETATE [Suspect]
     Dates: start: 20000501, end: 20001101

REACTIONS (2)
  - BREAST CANCER [None]
  - THROMBOSIS [None]
